FAERS Safety Report 19774770 (Version 1)
Quarter: 2021Q3

REPORT INFORMATION
  Report Type: Spontaneous
  Country: FR (occurrence: FR)
  Receive Date: 20210901
  Receipt Date: 20210901
  Transmission Date: 20211014
  Serious: Yes (Life-Threatening, Other)
  Sender: FDA-Public Use
  Company Number: FR-CELLTRION INC.-2021FR011924

PATIENT

DRUGS (9)
  1. VINCRISTINE [Suspect]
     Active Substance: VINCRISTINE
     Indication: DIFFUSE LARGE B-CELL LYMPHOMA
     Dosage: 1 MG, TD  ON D1
  2. PREDNISONE. [Suspect]
     Active Substance: PREDNISONE
     Indication: DIFFUSE LARGE B-CELL LYMPHOMA
     Dosage: 40 MG/M2 D1 TO D5
  3. PREDNISONE. [Suspect]
     Active Substance: PREDNISONE
     Dosage: 60 MG/M2 PER OS, DAYS ? TO ?1
  4. RITUXIMAB. [Suspect]
     Active Substance: RITUXIMAB
     Indication: DIFFUSE LARGE B-CELL LYMPHOMA
     Dosage: 375 MG/M2 ON D1
     Route: 042
  5. DOXORUBICIN [Suspect]
     Active Substance: DOXORUBICIN
     Indication: DIFFUSE LARGE B-CELL LYMPHOMA
     Dosage: 25 MG/M2 ON D1
  6. LENALIDOMIDE [Suspect]
     Active Substance: LENALIDOMIDE
     Indication: DIFFUSE LARGE B-CELL LYMPHOMA
     Dosage: 10 MG TD ON D1 TO D14 EVERY 3 WEEKS
  7. RITUXIMAB. [Suspect]
     Active Substance: RITUXIMAB
     Dosage: 1400 MG, TD ON D1 OF CYCLES 2?6
     Route: 058
  8. VINCRISTINE [Suspect]
     Active Substance: VINCRISTINE
     Dosage: 1 MG, TD IV, AT D ?7
     Route: 042
  9. CYCLOPHOSPHAMIDE. [Suspect]
     Active Substance: CYCLOPHOSPHAMIDE
     Indication: DIFFUSE LARGE B-CELL LYMPHOMA
     Dosage: 400 MG/M2 ON D1

REACTIONS (5)
  - Incorrect route of product administration [Unknown]
  - Neutropenia [Unknown]
  - Neoplasm malignant [Unknown]
  - Pulmonary embolism [Unknown]
  - Infection [Unknown]
